FAERS Safety Report 24524316 (Version 3)
Quarter: 2025Q2

REPORT INFORMATION
  Report Type: Spontaneous
  Country: JP (occurrence: JP)
  Receive Date: 20241018
  Receipt Date: 20250624
  Transmission Date: 20250717
  Serious: Yes (Life-Threatening, Hospitalization, Other)
  Sender: ALEXION PHARMACEUTICALS
  Company Number: JP-ASTRAZENECA-240026842_013220_P_1

PATIENT
  Age: 67 Year
  Weight: 73 kg

DRUGS (4)
  1. IMFINZI [Suspect]
     Active Substance: DURVALUMAB
     Indication: Hepatocellular carcinoma
  2. IMJUDO [Suspect]
     Active Substance: TREMELIMUMAB\TREMELIMUMAB-ACTL
     Indication: Hepatocellular carcinoma
  3. URSODIOL [Concomitant]
     Active Substance: URSODIOL
  4. NIFEDIPINE [Concomitant]
     Active Substance: NIFEDIPINE
     Indication: Hypertension

REACTIONS (5)
  - Immune-mediated myocarditis [Recovering/Resolving]
  - Atrioventricular block second degree [Unknown]
  - Paroxysmal atrioventricular block [Unknown]
  - Cardiac failure [Recovering/Resolving]
  - Emphysema [Unknown]
